FAERS Safety Report 13134333 (Version 1)
Quarter: 2017Q1

REPORT INFORMATION
  Report Type: Other
  Country: JP (occurrence: JP)
  Receive Date: 20170120
  Receipt Date: 20170120
  Transmission Date: 20170428
  Serious: Yes (Other)
  Sender: FDA-Public Use
  Company Number: JP-CELLTRION HEALTHCARE HUNGARY KFT-2016JP013019

PATIENT

DRUGS (9)
  1. INFLIXIMAB BS FOR I.V. INFUSION100 MG [NK] [Suspect]
     Active Substance: INFLIXIMAB
     Indication: COLITIS ULCERATIVE
     Dosage: 300 MG/BODY/DAY
     Route: 042
     Dates: start: 20160603, end: 20160603
  2. MESALAZINE [Concomitant]
     Active Substance: MESALAMINE
     Indication: COLITIS ULCERATIVE
     Dosage: 3000 MG/DAY
     Dates: start: 20120615
  3. MARZULENE                          /01184501/ [Concomitant]
     Indication: COLITIS ULCERATIVE
     Dosage: 3.9 G/DAY
     Dates: start: 20120615
  4. LAC-B [Concomitant]
     Active Substance: BIFIDOBACTERIUM SPP.
     Indication: COLITIS ULCERATIVE
     Dosage: 6 G, DAILY
     Dates: start: 20120615
  5. BERIZYM                            /01945301/ [Concomitant]
     Indication: COLITIS ULCERATIVE
     Dosage: 3 G/DAY
     Dates: start: 20120615
  6. INFLIXIMAB BS FOR I.V. INFUSION100 MG [NK] [Suspect]
     Active Substance: INFLIXIMAB
     Dosage: 300 MG/BODY/DAY
     Route: 042
     Dates: start: 20160617, end: 20160617
  7. INFLIXIMAB BS FOR I.V. INFUSION100 MG [NK] [Suspect]
     Active Substance: INFLIXIMAB
     Dosage: 300 MG/BODY/DAY
     Route: 042
     Dates: start: 20160715, end: 20160715
  8. PENTASA [Concomitant]
     Active Substance: MESALAMINE
     Indication: COLITIS ULCERATIVE
     Dosage: 1 G/DAY
     Dates: start: 20130310, end: 20140316
  9. LUCKMERON                          /06771401/ [Concomitant]
     Indication: COLITIS ULCERATIVE
     Dosage: 3 G/DAY
     Dates: start: 20120615

REACTIONS (1)
  - Alopecia [Recovered/Resolved]

NARRATIVE: CASE EVENT DATE: 20160825
